FAERS Safety Report 6393465-X (Version None)
Quarter: 2009Q4

REPORT INFORMATION
  Report Type: 
  Country: None (occurrence: None)
  Receive Date: 20091008
  Receipt Date: 20090924
  Transmission Date: 20100525
  Serious: Yes (Disabling)
  Sender: FDA-Public Use
  Company Number: GB-PFIZER INC-2009273370

PATIENT
  Age: 27 Year

DRUGS (5)
  1. CHAMPIX [Suspect]
     Indication: SMOKING CESSATION THERAPY
     Dosage: UNK
     Route: 048
     Dates: start: 20090820, end: 20090831
  2. CALCIUM CARBONATE [Concomitant]
     Indication: DYSPEPSIA
     Dosage: UNK
     Route: 048
     Dates: start: 20090729
  3. SODIUM ALGINATE [Concomitant]
     Indication: DYSPEPSIA
     Dosage: UNK
     Route: 048
     Dates: start: 20090729
  4. SODIUM BICARBONATE [Concomitant]
     Indication: DYSPEPSIA
     Dosage: UNK
     Route: 048
     Dates: start: 20090729
  5. TEGRETOL RETARD [Concomitant]
     Indication: EPILEPSY
     Dosage: 2000 MG, UNK
     Route: 048
     Dates: start: 20090503

REACTIONS (1)
  - EPILEPSY [None]
